FAERS Safety Report 5743663-0 (Version None)
Quarter: 2008Q2

REPORT INFORMATION
  Report Type: 
  Country: None (occurrence: None)
  Receive Date: 20080516
  Receipt Date: 20080507
  Transmission Date: 20081010
  Serious: Yes (Other)
  Sender: FDA-Public Use
  Company Number: 2008SU000862

PATIENT
  Age: 57 Year
  Sex: Female
  Weight: 95.5 kg

DRUGS (6)
  1. VESICARE [Suspect]
     Dosage: 5 MG, ORAL
     Route: 048
     Dates: start: 20080426, end: 20080426
  2. ASPIRIN [Concomitant]
  3. FEMOSTON (ESTRADIOL, DYDROGESTERONE) [Concomitant]
  4. PERINDOPRIL ERBUMINE [Concomitant]
  5. SERETIDE (FLUTICASONE PROPIONATE) [Concomitant]
  6. VENTOLIN (SALBUTAMOL SULFATE) [Concomitant]

REACTIONS (1)
  - BRONCHOSPASM [None]
